FAERS Safety Report 17829805 (Version 1)
Quarter: 2020Q2

REPORT INFORMATION
  Report Type: Spontaneous
  Country: JP (occurrence: JP)
  Receive Date: 20200527
  Receipt Date: 20200527
  Transmission Date: 20200714
  Serious: Yes (Other)
  Sender: FDA-Public Use
  Company Number: JP-MACLEODS PHARMACEUTICALS US LTD-MAC2020026590

PATIENT

DRUGS (1)
  1. DONEPEZIL. [Suspect]
     Active Substance: DONEPEZIL
     Indication: HALLUCINATION, VISUAL
     Dosage: 5 MILLIGRAM, QD
     Route: 065

REACTIONS (1)
  - Pleurothotonus [Not Recovered/Not Resolved]
